FAERS Safety Report 9967747 (Version 1)
Quarter: 2014Q1

REPORT INFORMATION
  Report Type: Report from Study
  Country: US (occurrence: US)
  Receive Date: 20140306
  Receipt Date: 20140306
  Transmission Date: 20141002
  Serious: No
  Sender: FDA-Public Use
  Company Number: US-ABBVIE-13P-163-1144613-00

PATIENT
  Sex: Female

DRUGS (1)
  1. HUMIRA [Suspect]
     Indication: PSORIATIC ARTHROPATHY

REACTIONS (10)
  - Urinary incontinence [Unknown]
  - Abdominal pain lower [Unknown]
  - Burning sensation [Unknown]
  - Urinary tract infection [Unknown]
  - Urinary incontinence [Unknown]
  - Nocturia [Unknown]
  - Pollakiuria [Unknown]
  - Malaise [Unknown]
  - Pallor [Unknown]
  - Dysuria [Unknown]
